FAERS Safety Report 7394886-9 (Version None)
Quarter: 2011Q2

REPORT INFORMATION
  Report Type: 
  Country: None (occurrence: None)
  Receive Date: 20110405
  Receipt Date: 20100526
  Transmission Date: 20111010
  Serious: Yes (Other)
  Sender: FDA-Public Use
  Company Number: B0657867A

PATIENT
  Sex: Female
  Weight: 41 kg

DRUGS (20)
  1. FUNGUARD [Concomitant]
     Dosage: 50MG PER DAY
     Route: 042
     Dates: start: 20091005, end: 20091020
  2. METHYCOBAL [Concomitant]
     Dosage: 1500MCG PER DAY
     Route: 048
     Dates: start: 20091005
  3. ANTIBIOTIC-RESISTANT LACTIC ACID BACTERIA [Concomitant]
     Route: 048
     Dates: start: 20091011, end: 20091030
  4. GRANISETRON HCL [Concomitant]
     Dosage: 6MG PER DAY
     Route: 042
     Dates: start: 20091005, end: 20091006
  5. ATARAX [Concomitant]
     Dates: start: 20091007, end: 20091016
  6. MEDLENIK [Concomitant]
     Dosage: 2ML PER DAY
     Route: 042
     Dates: start: 20091010, end: 20091025
  7. RANITIDINE [Concomitant]
     Dosage: 100MG PER DAY
     Dates: start: 20091013, end: 20091013
  8. GASTER D [Concomitant]
     Dosage: 20MG PER DAY
     Route: 048
     Dates: start: 20091005
  9. LENDORMIN [Concomitant]
     Dosage: .25MG PER DAY
     Route: 048
     Dates: start: 20091006
  10. TRYPTANOL [Concomitant]
     Dosage: 10MG PER DAY
     Route: 048
     Dates: start: 20091006
  11. ALKERAN [Suspect]
     Indication: STEM CELL TRANSPLANT
     Dosage: 130MG PER DAY
     Route: 042
     Dates: start: 20091005, end: 20091006
  12. GRAN [Concomitant]
     Dates: start: 20091009, end: 20091021
  13. MS REISHIPPU [Concomitant]
     Route: 062
     Dates: start: 20091015, end: 20091016
  14. VITAMEDIN [Concomitant]
     Dosage: 1IUAX PER DAY
     Route: 042
     Dates: start: 20091026, end: 20091026
  15. MUCOSTA [Concomitant]
     Dosage: 300MG PER DAY
     Route: 048
     Dates: start: 20091005, end: 20091012
  16. GASTER [Concomitant]
     Dosage: 20MG PER DAY
     Route: 042
     Dates: start: 20091014, end: 20091019
  17. URSO 250 [Concomitant]
     Dosage: 300MG PER DAY
     Route: 048
     Dates: start: 20091005
  18. HYDROCORTONE [Concomitant]
     Route: 042
     Dates: start: 20091008, end: 20091030
  19. DUROTEP [Concomitant]
     Dosage: 8.4MG PER DAY
     Route: 062
     Dates: start: 20091007
  20. OZEX [Concomitant]
     Dosage: 300MG PER DAY
     Route: 048
     Dates: start: 20091005, end: 20091012

REACTIONS (1)
  - FEBRILE NEUTROPENIA [None]
